FAERS Safety Report 12503181 (Version 2)
Quarter: 2016Q3

REPORT INFORMATION
  Report Type: Report from Study
  Country: CA (occurrence: CA)
  Receive Date: 20160628
  Receipt Date: 20160801
  Transmission Date: 20161109
  Serious: Yes (Other)
  Sender: FDA-Public Use
  Company Number: PHHY2012CA104479

PATIENT
  Age: 81 Year
  Sex: Male
  Weight: 88.44 kg

DRUGS (3)
  1. SANDOSTATIN LAR DEPOT [Suspect]
     Active Substance: OCTREOTIDE ACETATE
     Indication: NEUROENDOCRINE TUMOUR
     Dosage: 20 MG, QMO (EVERY 4 WEEKS)
     Route: 030
     Dates: start: 20111110
  2. SANDOSTATIN LAR DEPOT [Suspect]
     Active Substance: OCTREOTIDE ACETATE
     Dosage: 30 MG, QMO (EVERY 4 WEEKS)
     Route: 030
  3. SANDOSTATIN LAR DEPOT [Suspect]
     Active Substance: OCTREOTIDE ACETATE
     Dosage: 60 MG, QMO
     Route: 030

REACTIONS (24)
  - Blood pressure systolic increased [Unknown]
  - Malaise [Unknown]
  - Injection site warmth [Recovered/Resolved]
  - Cystitis [Unknown]
  - Vision blurred [Unknown]
  - Dyspnoea [Unknown]
  - Injection site thrombosis [Unknown]
  - Blood pressure diastolic decreased [Unknown]
  - Body temperature increased [Unknown]
  - Haematuria [Unknown]
  - Diarrhoea [Not Recovered/Not Resolved]
  - Fatigue [Recovered/Resolved]
  - Loss of consciousness [Unknown]
  - Hot flush [Recovered/Resolved]
  - Nausea [Recovered/Resolved]
  - Macular degeneration [Unknown]
  - Blood pressure increased [Unknown]
  - Influenza [Unknown]
  - Flushing [Unknown]
  - Dizziness [Unknown]
  - Asthenia [Unknown]
  - Decreased appetite [Unknown]
  - Weight decreased [Unknown]
  - Abdominal discomfort [Unknown]

NARRATIVE: CASE EVENT DATE: 20130228
